FAERS Safety Report 6370740-6 (Version None)
Quarter: 2009Q3

REPORT INFORMATION
  Report Type: 
  Country: None (occurrence: None)
  Receive Date: 20090923
  Receipt Date: 20070531
  Transmission Date: 20100115
  Serious: No
  Sender: FDA-Public Use
  Company Number: US-ASTRAZENECA-2006UW26675

PATIENT
  Age: 14332 Day
  Sex: Female
  Weight: 93.9 kg

DRUGS (15)
  1. SEROQUEL [Suspect]
     Indication: SCHIZOPHRENIA
     Route: 048
     Dates: start: 20000302
  2. SEROQUEL [Suspect]
     Route: 048
     Dates: start: 20000316
  3. SEROQUEL [Suspect]
     Route: 048
     Dates: start: 20010927
  4. SEROQUEL [Suspect]
     Route: 048
     Dates: start: 20011121
  5. SEROQUEL [Suspect]
     Route: 048
     Dates: start: 20020130
  6. SEROQUEL [Suspect]
     Route: 048
     Dates: start: 20021201
  7. DEXATRIM [Concomitant]
  8. GEODON [Concomitant]
  9. HALDOL [Concomitant]
     Dates: start: 19850601, end: 19900101
  10. RISPERDAL [Concomitant]
     Dates: start: 19930101
  11. ZYPREXA [Concomitant]
     Dates: start: 19941101, end: 20050101
  12. COGENTIN [Concomitant]
  13. LITHIUM [Concomitant]
     Dosage: 600 MG-1500 MG
  14. PAXIL [Concomitant]
  15. VISTARIL [Concomitant]

REACTIONS (3)
  - HYPERGLYCAEMIA [None]
  - OSTEOARTHRITIS [None]
  - WEIGHT INCREASED [None]
